FAERS Safety Report 19407763 (Version 1)
Quarter: 2021Q2

REPORT INFORMATION
  Report Type: Spontaneous
  Country: ES (occurrence: ES)
  Receive Date: 20210612
  Receipt Date: 20210612
  Transmission Date: 20210717
  Serious: Yes (Other)
  Sender: FDA-Public Use
  Company Number: ES-MACLEODS PHARMACEUTICALS US LTD-MAC2021031413

PATIENT

DRUGS (2)
  1. ACYCLOVIR. [Suspect]
     Active Substance: ACYCLOVIR
     Dosage: UNK UNK, QID, CREAM (ONE APPLICATION
     Route: 047
  2. ACYCLOVIR. [Suspect]
     Active Substance: ACYCLOVIR
     Indication: OPHTHALMIC HERPES ZOSTER
     Dosage: 200 MILLIGRAM, QD (200 MG/24 H)
     Route: 048

REACTIONS (1)
  - Neurotoxicity [Recovered/Resolved]
